FAERS Safety Report 24584592 (Version 4)
Quarter: 2024Q4

REPORT INFORMATION
  Report Type: Spontaneous
  Country: US (occurrence: US)
  Receive Date: 20241106
  Receipt Date: 20241219
  Transmission Date: 20250115
  Serious: No
  Sender: PFIZER
  Company Number: US-PFIZER INC-202400291998

PATIENT
  Age: 43 Year
  Sex: Female
  Weight: 124.74 kg

DRUGS (1)
  1. GENOTROPIN [Suspect]
     Active Substance: SOMATROPIN
     Indication: Growth hormone deficiency
     Dosage: UNK, ONCE
     Dates: start: 2022, end: 2022

REACTIONS (6)
  - Device difficult to use [Unknown]
  - Device physical property issue [Unknown]
  - Device leakage [Unknown]
  - Contusion [Unknown]
  - Tremor [Unknown]
  - Injury associated with device [Unknown]

NARRATIVE: CASE EVENT DATE: 20220101
